FAERS Safety Report 13653781 (Version 1)
Quarter: 2017Q2

REPORT INFORMATION
  Report Type: Spontaneous
  Country: IL (occurrence: IL)
  Receive Date: 20170614
  Receipt Date: 20170614
  Transmission Date: 20170830
  Serious: Yes (Other)
  Sender: FDA-Public Use
  Company Number: IL-JNJFOC-20170606183

PATIENT

DRUGS (1)
  1. HUMAN CLOTTABLE PROTEIN/HUMAN THROMBIN [Suspect]
     Active Substance: FIBRINOGEN HUMAN\THROMBIN HUMAN
     Indication: EMPHYSEMA
     Route: 065

REACTIONS (4)
  - Product use in unapproved indication [Unknown]
  - Lung consolidation [Recovered/Resolved]
  - Pulmonary mass [Unknown]
  - Off label use [Unknown]
